FAERS Safety Report 7797769-5 (Version None)
Quarter: 2011Q4

REPORT INFORMATION
  Report Type: 
  Country: None (occurrence: None)
  Receive Date: 20111005
  Receipt Date: 20110922
  Transmission Date: 20120403
  Serious: Yes (Other)
  Sender: FDA-Public Use
  Company Number: US-JNJFOC-20110905092

PATIENT
  Sex: Male
  Weight: 81.65 kg

DRUGS (3)
  1. ROGAINE EXTRA STRENGTH (FOR MEN) [Suspect]
     Route: 061
  2. ROGAINE EXTRA STRENGTH (FOR MEN) [Suspect]
     Indication: ALOPECIA
     Dosage: DOSE AND FREQUENCY PER REPORTER WAS AS DIRECTED
     Route: 061
     Dates: start: 20010101
  3. OTHER DRUGS (UNSPECIFIED) [Concomitant]
     Indication: PRODUCT USED FOR UNKNOWN INDICATION
     Route: 065

REACTIONS (2)
  - PNEUMONITIS [None]
  - PLEURAL EFFUSION [None]
